FAERS Safety Report 18955034 (Version 6)
Quarter: 2021Q3

REPORT INFORMATION
  Report Type: Spontaneous
  Country: DE (occurrence: DE)
  Receive Date: 20210301
  Receipt Date: 20210805
  Transmission Date: 20211014
  Serious: Yes (Life-Threatening, Hospitalization, Other)
  Sender: FDA-Public Use
  Company Number: NVSC2021DE039461

PATIENT
  Age: 1 Year
  Sex: Female
  Weight: 7 kg

DRUGS (6)
  1. CARBOPLATIN. [Suspect]
     Active Substance: CARBOPLATIN
     Indication: GLIOMA
  2. CARBOPLATIN. [Suspect]
     Active Substance: CARBOPLATIN
     Indication: BRAF V600E MUTATION POSITIVE
     Dosage: UNK
     Route: 042
     Dates: start: 20201028, end: 2021
  3. COTRIM [Concomitant]
     Active Substance: SULFAMETHOXAZOLE\TRIMETHOPRIM
     Indication: ANTIFUNGAL PROPHYLAXIS
     Dosage: UNK
     Route: 065
  4. GRANISETRON [Concomitant]
     Active Substance: GRANISETRON
     Indication: CHEMOTHERAPY
     Dosage: UNK
     Route: 065
  5. VINCRISTINE [Suspect]
     Active Substance: VINCRISTINE
     Indication: GLIOMA
     Dosage: UNK
     Route: 042
     Dates: start: 20201028, end: 2021
  6. VINCRISTINE [Suspect]
     Active Substance: VINCRISTINE
     Indication: BRAF V600E MUTATION POSITIVE

REACTIONS (8)
  - Hydrocephalus [Recovering/Resolving]
  - BRAF V600E mutation positive [Not Recovered/Not Resolved]
  - Malignant neoplasm progression [Not Recovered/Not Resolved]
  - Visual impairment [Unknown]
  - Intracranial pressure increased [Unknown]
  - Product use in unapproved indication [Unknown]
  - Feeding disorder [Unknown]
  - Glioma [Not Recovered/Not Resolved]

NARRATIVE: CASE EVENT DATE: 20201209
